FAERS Safety Report 6499504-X (Version None)
Quarter: 2009Q4

REPORT INFORMATION
  Report Type: 
  Country: None (occurrence: None)
  Receive Date: 20091215
  Receipt Date: 20091211
  Transmission Date: 20100525
  Serious: Yes (Hospitalization, Other)
  Sender: FDA-Public Use
  Company Number: DE-BAYER-200940073GPV

PATIENT
  Age: 64 Year
  Sex: Male

DRUGS (5)
  1. AVELOX [Suspect]
     Indication: EAR INFECTION
     Dosage: TREATMENT DURATION: ABOUT ONE WEEK (NOS)
     Route: 065
     Dates: start: 20091103, end: 20091101
  2. TAVANIC [Suspect]
     Dosage: UNTIL 15-DEC-2009
     Route: 048
  3. PARACETAMOL [Concomitant]
     Dosage: 1-2 TABLETS
     Route: 048
     Dates: start: 20091101
  4. EYE DROPS (NOS) [Concomitant]
     Route: 047
     Dates: start: 20091103
  5. MONACID [Concomitant]
     Dates: start: 20091118, end: 20091118

REACTIONS (15)
  - ALANINE AMINOTRANSFERASE INCREASED [None]
  - BLOOD LACTATE DEHYDROGENASE INCREASED [None]
  - CIRCULATORY COLLAPSE [None]
  - DEHYDRATION [None]
  - DIARRHOEA [None]
  - DISORIENTATION [None]
  - DYSPNOEA [None]
  - HEADACHE [None]
  - LIVER FUNCTION TEST ABNORMAL [None]
  - MENTAL DISORDER [None]
  - MOBILITY DECREASED [None]
  - NERVOUS SYSTEM DISORDER [None]
  - PNEUMONIA [None]
  - RASH [None]
  - URINARY INCONTINENCE [None]
